FAERS Safety Report 8088900-5 (Version None)
Quarter: 2012Q1

REPORT INFORMATION
  Report Type: 
  Country: None (occurrence: None)
  Receive Date: 20120128
  Receipt Date: 20110623
  Transmission Date: 20120608
  Serious: No
  Sender: FDA-Public Use
  Company Number: US-ABBOTT-11P-163-0734783-00

PATIENT
  Age: 34 Year
  Sex: Male

DRUGS (3)
  1. VITAMIN B-12 [Concomitant]
     Indication: SUPPLEMENTATION THERAPY
     Route: 060
  2. HUMIRA [Suspect]
     Indication: CROHN'S DISEASE
     Dates: start: 20110101, end: 20110401
  3. HUMIRA [Suspect]
     Dates: start: 20110401

REACTIONS (1)
  - CROHN'S DISEASE [None]
